FAERS Safety Report 19079555 (Version 1)
Quarter: 2021Q1

REPORT INFORMATION
  Report Type: Other
  Country: FR (occurrence: FR)
  Receive Date: 20210331
  Receipt Date: 20210331
  Transmission Date: 20210420
  Serious: Yes (Hospitalization, Other)
  Sender: FDA-Public Use
  Company Number: FR-VALIDUS PHARMACEUTICALS LLC-FR-2021VAL000922

PATIENT
  Sex: Male

DRUGS (4)
  1. CANDESARTAN CILEXETIL. [Suspect]
     Active Substance: CANDESARTAN CILEXETIL
     Indication: MEDICATION ERROR
     Dosage: 8 MG, UNK
     Route: 048
     Dates: start: 20180731, end: 20180731
  2. FLECAINIDE [Suspect]
     Active Substance: FLECAINIDE
     Indication: MEDICATION ERROR
     Dosage: 100 MG, UNK
     Route: 048
     Dates: start: 20180731, end: 20180731
  3. FUROSEMIDE. [Suspect]
     Active Substance: FUROSEMIDE
     Indication: MEDICATION ERROR
     Dosage: 40 MG, UNK
     Route: 048
     Dates: start: 20180731, end: 20180731
  4. BISOPROLOL FUMARATE. [Suspect]
     Active Substance: BISOPROLOL FUMARATE
     Indication: MEDICATION ERROR
     Dosage: 2.5 MG, UNK
     Route: 048
     Dates: start: 20180731, end: 20180731

REACTIONS (2)
  - Hypotension [Recovered/Resolved]
  - Bradycardia [Recovered/Resolved]

NARRATIVE: CASE EVENT DATE: 20180731
